FAERS Safety Report 9405417 (Version 2)
Quarter: 2013Q3

REPORT INFORMATION
  Report Type: Spontaneous
  Country: JP (occurrence: JP)
  Receive Date: 20130715
  Receipt Date: 20130909
  Transmission Date: 20140515
  Serious: Yes (Other)
  Sender: FDA-Public Use
  Company Number: SYM-2013-05989

PATIENT
  Age: 65 Year
  Sex: Female

DRUGS (4)
  1. FLUOROURACIL [Suspect]
     Indication: BREAST CANCER FEMALE
  2. EPIRUBICIN (EPIRUBICIN) (EPIRUBICIN) [Suspect]
  3. CYCLOPHOSPHAMIDE [Suspect]
     Indication: BREAST CANCER FEMALE
  4. PACLITAXEL [Suspect]
     Indication: BREAST CANCER FEMALE

REACTIONS (5)
  - Septic shock [None]
  - Interstitial lung disease [None]
  - Disseminated intravascular coagulation [None]
  - Neutropenia [None]
  - Device related infection [None]
